FAERS Safety Report 9470878 (Version 2)
Quarter: 2013Q3

REPORT INFORMATION
  Report Type: Report from Study
  Country: FR (occurrence: FR)
  Receive Date: 20130822
  Receipt Date: 20130822
  Transmission Date: 20140515
  Serious: Yes (Hospitalization)
  Sender: FDA-Public Use
  Company Number: PHHO2008FR01497

PATIENT
  Age: 65 Year
  Sex: Male
  Weight: 141.2 kg

DRUGS (7)
  1. ALISKIREN [Suspect]
     Indication: CARDIOVASCULAR DISORDER
     Route: 048
     Dates: start: 20071204
  2. ALISKIREN [Suspect]
     Dosage: UNK
  3. METFORMIN [Concomitant]
     Dates: end: 20080118
  4. BIPRETERAX [Concomitant]
  5. AMLOR [Concomitant]
  6. KARDEGIC [Concomitant]
  7. LOXEN [Concomitant]

REACTIONS (17)
  - Gastroenteritis [Recovering/Resolving]
  - Diarrhoea infectious [Recovering/Resolving]
  - Renal failure acute [Recovering/Resolving]
  - Dehydration [Recovering/Resolving]
  - Oropharyngeal pain [Unknown]
  - Abdominal pain [Recovering/Resolving]
  - Vomiting [Recovering/Resolving]
  - Weight decreased [Recovering/Resolving]
  - Oliguria [Recovering/Resolving]
  - Lipase increased [Recovering/Resolving]
  - Thirst [Recovering/Resolving]
  - Psychomotor skills impaired [Recovering/Resolving]
  - Decreased appetite [Recovering/Resolving]
  - Asthenia [Recovering/Resolving]
  - Metabolic acidosis [Recovering/Resolving]
  - Azotaemia [Recovering/Resolving]
  - Blood creatinine increased [Recovering/Resolving]
